FAERS Safety Report 8836144 (Version 2)
Quarter: 2012Q4

REPORT INFORMATION
  Report Type: 
  Country: JP (occurrence: JP)
  Receive Date: 20121011
  Receipt Date: 20121112
  Transmission Date: 20130627
  Serious: Yes (Hospitalization)
  Sender: FDA-Public Use
  Company Number: JP-ABBOTT-12P-087-0990915-00

PATIENT
  Age: 52 Year
  Sex: Female

DRUGS (2)
  1. HUMIRA [Suspect]
     Indication: PSORIASIS
     Route: 058
     Dates: start: 20120509, end: 20120509
  2. HUMIRA [Suspect]
     Dates: start: 20120523, end: 20120715

REACTIONS (4)
  - Drug-induced liver injury [Not Recovered/Not Resolved]
  - Malaise [Recovering/Resolving]
  - Hypoaesthesia [Recovered/Resolved]
  - Headache [Recovering/Resolving]
